FAERS Safety Report 6188191-6 (Version None)
Quarter: 2009Q2

REPORT INFORMATION
  Report Type: 
  Country: None (occurrence: None)
  Receive Date: 20090511
  Receipt Date: 20090424
  Transmission Date: 20091009
  Serious: Yes (Life-Threatening, Hospitalization)
  Sender: FDA-Public Use
  Company Number: 000702

PATIENT
  Age: 32 Year
  Sex: Male

DRUGS (2)
  1. OMEPRAZOLE [Suspect]
     Indication: INFLAMMATORY BOWEL DISEASE
     Dosage: (20 MG, 20 MG DAILY)
     Dates: start: 20050620
  2. SALAZOPYRINE (SALAZOPYRINE) [Suspect]
     Indication: INFLAMMATORY BOWEL DISEASE
     Dosage: (1500 MG, 1500MG DAILY)

REACTIONS (11)
  - ACINETOBACTER INFECTION [None]
  - ALANINE AMINOTRANSFERASE INCREASED [None]
  - ASPARTATE AMINOTRANSFERASE INCREASED [None]
  - HEPATIC FUNCTION ABNORMAL [None]
  - HYPOTHYROIDISM [None]
  - LEUKOCYTOSIS [None]
  - MADAROSIS [None]
  - RED BLOOD CELL SEDIMENTATION RATE INCREASED [None]
  - STAPHYLOCOCCAL INFECTION [None]
  - STREPTOCOCCAL INFECTION [None]
  - TOXIC EPIDERMAL NECROLYSIS [None]
